FAERS Safety Report 18618034 (Version 1)
Quarter: 2020Q4

REPORT INFORMATION
  Report Type: Spontaneous
  Country: US (occurrence: US)
  Receive Date: 20201215
  Receipt Date: 20201215
  Transmission Date: 20210114
  Serious: Yes (Death, Hospitalization, Other)
  Sender: FDA-Public Use
  Company Number: US-ASTELLAS-2020US043595

PATIENT
  Age: 67 Year
  Sex: Male

DRUGS (19)
  1. ISAVUCONAZOLE [Suspect]
     Active Substance: ISAVUCONAZOLE
     Indication: PRODUCT USED FOR UNKNOWN INDICATION
     Dosage: UNK UNK, UNKNOWN FREQ.
     Route: 065
  2. RITUXIMAB. [Concomitant]
     Active Substance: RITUXIMAB
     Indication: CHRONIC GRAFT VERSUS HOST DISEASE
     Dosage: UNK UNK, CYCLIC
     Route: 065
     Dates: start: 20191029
  3. IBRUTINIB [Suspect]
     Active Substance: IBRUTINIB
     Route: 065
     Dates: start: 20200327, end: 20200414
  4. METHOTREXATE. [Concomitant]
     Active Substance: METHOTREXATE
     Indication: PROPHYLAXIS AGAINST GRAFT VERSUS HOST DISEASE
     Dosage: UNK UNK, UNKNOWN FREQ.
     Route: 065
  5. RITUXIMAB. [Concomitant]
     Active Substance: RITUXIMAB
     Dosage: UNK UNK, CYCLIC
     Route: 065
     Dates: start: 20191112
  6. LETERMOVIR [Concomitant]
     Active Substance: LETERMOVIR
     Indication: PROPHYLAXIS
     Dosage: UNK UNK, UNKNOWN FREQ.
     Route: 065
  7. DECITABINE. [Concomitant]
     Active Substance: DECITABINE
     Dosage: 10 MG/M2, CYCLIC (5 DAYS)
     Route: 065
     Dates: start: 20190913
  8. ACYCLOVIR [ACICLOVIR] [Concomitant]
     Active Substance: ACYCLOVIR
     Indication: PROPHYLAXIS
     Dosage: UNK UNK, UNKNOWN FREQ.
     Route: 065
  9. RUXOLITINIB [Concomitant]
     Active Substance: RUXOLITINIB
     Indication: CHRONIC GRAFT VERSUS HOST DISEASE
     Route: 065
     Dates: start: 20191210, end: 20191226
  10. DECITABINE. [Concomitant]
     Active Substance: DECITABINE
     Indication: ACUTE MYELOID LEUKAEMIA
     Dosage: 10 MG/M2, CYCLIC (5 DAYS)
     Route: 065
     Dates: start: 20190723
  11. RITUXIMAB. [Concomitant]
     Active Substance: RITUXIMAB
     Dosage: UNK UNK, CYCLIC
     Route: 065
     Dates: start: 20191105
  12. PREDNISONE. [Concomitant]
     Active Substance: PREDNISONE
     Route: 065
  13. TACROLIMUS. [Suspect]
     Active Substance: TACROLIMUS
     Indication: PROPHYLAXIS AGAINST GRAFT VERSUS HOST DISEASE
     Dosage: UNK UNK, UNKNOWN FREQ.
     Route: 065
  14. PENTAMIDINE [Concomitant]
     Active Substance: PENTAMIDINE
     Indication: PROPHYLAXIS
     Dosage: UNK UNK, UNKNOWN FREQ.
     Route: 065
  15. RUXOLITINIB [Concomitant]
     Active Substance: RUXOLITINIB
     Route: 065
     Dates: start: 20191226, end: 20200123
  16. RUXOLITINIB [Concomitant]
     Active Substance: RUXOLITINIB
     Route: 065
     Dates: start: 20200123, end: 20200130
  17. PREDNISONE. [Concomitant]
     Active Substance: PREDNISONE
     Indication: CHRONIC GRAFT VERSUS HOST DISEASE
     Dosage: UNK UNK, UNKNOWN FREQ.
     Route: 065
     Dates: start: 20190627, end: 20200423
  18. IBRUTINIB [Suspect]
     Active Substance: IBRUTINIB
     Indication: CHRONIC GRAFT VERSUS HOST DISEASE
     Route: 065
     Dates: start: 20200303, end: 20200319
  19. VORICONAZOLE. [Concomitant]
     Active Substance: VORICONAZOLE
     Indication: PROPHYLAXIS
     Dosage: UNK UNK, UNKNOWN FREQ.
     Route: 065

REACTIONS (6)
  - Stenotrophomonas infection [Unknown]
  - Enterovirus infection [Unknown]
  - Bacterial infection [Unknown]
  - Rhinovirus infection [Unknown]
  - Atrial fibrillation [Recovered/Resolved]
  - Inappropriate antidiuretic hormone secretion [Unknown]

NARRATIVE: CASE EVENT DATE: 2020
